FAERS Safety Report 6441608-1 (Version None)
Quarter: 2009Q4

REPORT INFORMATION
  Report Type: 
  Country: None (occurrence: None)
  Receive Date: 20091116
  Receipt Date: 20091104
  Transmission Date: 20100525
  Serious: Yes (Hospitalization, Other)
  Sender: FDA-Public Use
  Company Number: US-ELI_LILLY_AND_COMPANY-US200910002132

PATIENT
  Age: 53 Year
  Sex: Female

DRUGS (3)
  1. CYMBALTA [Suspect]
  2. PAXIL [Concomitant]
     Dosage: 1 D/F, UNK
  3. OTHER NERVOUS SYSTEM DRUGS [Concomitant]
     Dosage: 1 D/F, UNK

REACTIONS (2)
  - GASTROSTOMY TUBE INSERTION [None]
  - RESPIRATORY DISORDER [None]
